FAERS Safety Report 9820433 (Version 1)
Quarter: 2013Q4

REPORT INFORMATION
  Report Type: Spontaneous
  Country: US (occurrence: None)
  Receive Date: 20131028
  Receipt Date: 20131028
  Transmission Date: 20140711
  Serious: Yes (Other)
  Sender: FDA-Public Use
  Company Number: 2013US001618

PATIENT
  Age: 66 Year
  Sex: Male
  Weight: 86 kg

DRUGS (7)
  1. ICLUSIG [Suspect]
     Indication: CHRONIC MYELOID LEUKAEMIA
  2. JANUVIA (SITAGLIPTIN PHOSPHATE) [Concomitant]
  3. LISINOPRIL (LISINOPRIL) [Concomitant]
  4. GLUCOPHAG (METFORMIN HYDROCHLORIDE) [Concomitant]
  5. LASIX (FUROSEMIDE SODIUM) [Concomitant]
  6. SOTALOL (SOTALOL) [Concomitant]
  7. ATORVASTATIN (ATORVASTATIN) [Concomitant]

REACTIONS (3)
  - Pancreatitis [None]
  - Lipase increased [None]
  - Blood glucose increased [None]
